FAERS Safety Report 7265402-7 (Version None)
Quarter: 2011Q1

REPORT INFORMATION
  Report Type: 
  Country: None (occurrence: None)
  Receive Date: 20110131
  Receipt Date: 20110120
  Transmission Date: 20110831
  Serious: No
  Sender: FDA-Public Use
  Company Number: ES-JNJFOC-20100407709

PATIENT
  Age: 21 Year
  Sex: Female
  Weight: 97 kg

DRUGS (1)
  1. STELARA [Suspect]
     Indication: PSORIASIS
     Route: 058

REACTIONS (2)
  - PSORIASIS [None]
  - ADVERSE EVENT [None]
